FAERS Safety Report 7638268-0 (Version None)
Quarter: 2011Q3

REPORT INFORMATION
  Report Type: 
  Country: None (occurrence: None)
  Receive Date: 20110727
  Receipt Date: 20110720
  Transmission Date: 20111222
  Serious: Yes (Death, Life-Threatening, Hospitalization, Other)
  Sender: FDA-Public Use
  Company Number: JP-BRISTOL-MYERS SQUIBB COMPANY-14584247

PATIENT
  Age: 23 Year
  Sex: Female

DRUGS (35)
  1. OMEGACIN [Concomitant]
     Dosage: 11MAR09,13MAR2009-UNKNOWN;12AUG-13AUG09;.3X3 G/D 31AUG-10SEP09 16OCT-4NOV09
     Route: 042
     Dates: start: 20090305, end: 20090813
  2. MAXIPIME [Concomitant]
     Dosage: 1DF- 1X3 G/D; INJ
     Route: 042
     Dates: start: 20091110, end: 20091124
  3. OXYCONTIN [Concomitant]
     Indication: HEADACHE
     Dosage: TAB
     Route: 048
     Dates: start: 20100110, end: 20100214
  4. POLYETHYLENE GLYCOL [Concomitant]
     Dosage: FREEZE DRIED POLYETHYLENE GLYCOL TREATED HUMAN NORMAL IMM
     Dates: start: 20090305
  5. TIENAM [Concomitant]
     Dosage: 11-14SEP09; 9FEB-19FEB2010; INJ;1DF- 0.5X3 G/D
     Route: 042
     Dates: start: 20090911, end: 20100219
  6. ADONA [Concomitant]
     Dosage: 15OCT-24NOV09;1DEC-25DEC09
     Route: 042
     Dates: start: 20091015, end: 20091225
  7. ETOPOSIDE [Concomitant]
     Indication: ACUTE LYMPHOCYTIC LEUKAEMIA
     Dosage: 4SEP-7SEP09;2NOV-5NOV09;22JNA2010-25JAN2010;27JAN-29JAN2010
     Route: 042
     Dates: start: 20090904, end: 20100129
  8. KYTRIL [Concomitant]
     Dosage: 4SEP-7SEP09; 2-5NOV09;22JAN-25JAN2010
     Route: 042
     Dates: start: 20090904, end: 20100129
  9. HABEKACIN [Concomitant]
     Route: 042
     Dates: start: 20090914, end: 20090917
  10. KEITEN [Concomitant]
     Dosage: INJ
     Route: 042
     Dates: start: 20091002, end: 20091013
  11. ETHAMBUTOL HYDROCHLORIDE [Concomitant]
     Dosage: TAB
     Route: 048
     Dates: start: 20091027
  12. OMEPRAZOLE [Concomitant]
     Indication: GASTRIC ULCER
     Dosage: INJ21FEB09-20MAY09 FROM 20MAY GIVEN ORALLY IN FORM OF TABS
     Route: 042
     Dates: start: 20090217, end: 20100128
  13. FULCALIQ 2 [Concomitant]
     Indication: FLUID REPLACEMENT
     Route: 042
     Dates: end: 20090710
  14. MINOCYCLINE HCL [Concomitant]
     Dosage: 17SEP-02OCT2009;12FEB-18FEB2010; 1DF- 100X2 MG/D
     Route: 042
     Dates: start: 20090917, end: 20100218
  15. FOSMICIN-S [Concomitant]
     Dosage: INJ; 1DF- 2X2 G/D
     Route: 042
     Dates: start: 20091014, end: 20091016
  16. ISONIAZID [Concomitant]
     Dosage: INJ
     Route: 042
     Dates: start: 20091023, end: 20091026
  17. LEVOFLOXACIN [Concomitant]
     Dosage: FORM TABS. 750MG/DAY
     Route: 048
     Dates: end: 20090916
  18. VANCOMYCIN [Concomitant]
     Indication: PSEUDOMEMBRANOUS COLITIS
     Route: 048
     Dates: start: 20090319, end: 20090326
  19. PENTAZOCINE LACTATE [Concomitant]
     Dosage: INJ
     Route: 042
     Dates: start: 20091112, end: 20091112
  20. MIDAZOLAM HCL [Concomitant]
     Route: 042
     Dates: start: 20100217
  21. SULFAMETHOXAZOLE [Concomitant]
     Route: 048
     Dates: start: 20091102, end: 20100222
  22. SPRYCEL [Suspect]
     Indication: ACUTE LYMPHOCYTIC LEUKAEMIA
     Dosage: 20FB09-30AP140MG;1MY-13AG140MG;14AG-UN140MG;140MG14AU-4SP;100MG9SE-26OC;10-18NV;19N-3JA10;4JN-16FB10
     Route: 048
     Dates: start: 20081218
  23. MEROPENEM [Concomitant]
     Dosage: .5X3 G/D 14SEP-2OCT2010;.5X3 G/D 26JAN-12FEB2010
     Route: 042
     Dates: start: 20090226, end: 20090228
  24. BIKLIN INJ [Concomitant]
     Dosage: AGAIN FROM 13MAR2009-UNKNOWN;400MG/D 8-11SEP09, 28JAN2010-
     Route: 042
     Dates: start: 20090305, end: 20090309
  25. TRANSAMIN [Concomitant]
     Dosage: 15OCT-24NOV09;1DEC-25DEC09
     Route: 042
     Dates: start: 20091015, end: 20091225
  26. ALBUMIN (HUMAN) [Concomitant]
     Dosage: INJ
     Route: 042
     Dates: start: 20100216, end: 20100218
  27. ESTRADERM [Concomitant]
     Dosage: 1 SHEET PER DAY
     Route: 048
  28. OXINORM [Concomitant]
     Indication: HEADACHE
     Dosage: POWDER
     Route: 048
     Dates: start: 20091113, end: 20100807
  29. AMBISOME [Concomitant]
     Dosage: 100MG/D 16-18FEB2010
     Route: 042
     Dates: start: 20090205, end: 20090429
  30. AMPHOTERICIN B [Concomitant]
     Dosage: 1DF= 100-150MG TILL 19MAR09 FROM 23MAR-29APR UNK DOSE
     Route: 042
     Dates: start: 20090205, end: 20090429
  31. FLUCONAZOLE [Concomitant]
     Dosage: 200MG 12-12FEB2010; 100MG 13-16FEB2010
     Route: 042
     Dates: start: 20100212, end: 20100216
  32. HYDROCORTISONE SODIUM SUCCINATE [Concomitant]
     Dosage: INJ
     Route: 042
  33. UNASYN [Concomitant]
     Dosage: 1DF- 3X2 G/D
     Route: 042
     Dates: start: 20090911, end: 20090914
  34. FLURBIPROFEN [Concomitant]
     Dosage: INJ
     Route: 042
  35. CLARITHROMYCIN [Concomitant]
     Dosage: TAB
     Route: 048
     Dates: start: 20091023, end: 20100226

REACTIONS (13)
  - NEUTROPHIL COUNT DECREASED [None]
  - PERICARDIAL EFFUSION [None]
  - GASTROINTESTINAL HAEMORRHAGE [None]
  - PLATELET COUNT DECREASED [None]
  - INTERSTITIAL LUNG DISEASE [None]
  - ANAEMIA [None]
  - PULMONARY HAEMORRHAGE [None]
  - DEATH [None]
  - PLEURAL EFFUSION [None]
  - SEPSIS [None]
  - WHITE BLOOD CELL COUNT DECREASED [None]
  - OEDEMA [None]
  - HEADACHE [None]
